FAERS Safety Report 24382891 (Version 1)
Quarter: 2024Q4

REPORT INFORMATION
  Report Type: Spontaneous
  Country: CN (occurrence: CN)
  Receive Date: 20241001
  Receipt Date: 20241001
  Transmission Date: 20250115
  Serious: Yes (Life-Threatening, Other)
  Sender: AMERICAN REGENT
  Company Number: CN-AMERICAN REGENT INC-2024003598

PATIENT
  Age: 47 Year
  Sex: Female
  Weight: 60 kg

DRUGS (1)
  1. FERINJECT [Suspect]
     Active Substance: FERRIC CARBOXYMALTOSE
     Indication: Iron deficiency anaemia
     Dosage: PLANNED ADMINISTRATION: 1000 MG IN 100 ML 0.9% SODIUM CHLORIDE (1 IN 1 D)
     Dates: start: 20240830, end: 20240830

REACTIONS (4)
  - Amaurosis [Recovering/Resolving]
  - Back pain [Recovered/Resolved]
  - Chest discomfort [Recovered/Resolved]
  - Dizziness [Recovered/Resolved]

NARRATIVE: CASE EVENT DATE: 20240830
